FAERS Safety Report 10762545 (Version 2)
Quarter: 2015Q1

REPORT INFORMATION
  Report Type: Spontaneous
  Country: DE (occurrence: DE)
  Receive Date: 20150204
  Receipt Date: 20150212
  Transmission Date: 20150721
  Serious: Yes (Hospitalization)
  Sender: FDA-Public Use
  Company Number: PHHY2015DE011723

PATIENT
  Age: 5 Year
  Sex: Female
  Weight: 14.3 kg

DRUGS (4)
  1. PROSPAN [Concomitant]
     Active Substance: IVY EXTRACT
     Indication: PRODUCT USED FOR UNKNOWN INDICATION
     Dosage: UNK (3 TO 4 TEELOFFEL)
     Route: 048
     Dates: start: 20150113, end: 20150119
  2. TIMOX [Suspect]
     Active Substance: OXCARBAZEPINE
     Indication: PETIT MAL EPILEPSY
     Dosage: 2 ML, QD (120 MG)
     Route: 048
     Dates: start: 20150119
  3. TIMOX [Suspect]
     Active Substance: OXCARBAZEPINE
     Indication: GENERALISED TONIC-CLONIC SEIZURE
     Dosage: 1 ML, QD (60 UNIT NOS)
     Route: 048
     Dates: start: 20150107, end: 20150113
  4. PARACETAMOL [Concomitant]
     Active Substance: ACETAMINOPHEN
     Indication: PRODUCT USED FOR UNKNOWN INDICATION
     Dosage: 5 ML, QD
     Route: 048
     Dates: start: 20150117, end: 20150119

REACTIONS (4)
  - Mucosal haemorrhage [Not Recovered/Not Resolved]
  - Pyrexia [Not Recovered/Not Resolved]
  - Rash erythematous [Not Recovered/Not Resolved]
  - Thrombocytopenia [Not Recovered/Not Resolved]

NARRATIVE: CASE EVENT DATE: 20150117
